FAERS Safety Report 7323980-3 (Version None)
Quarter: 2011Q1

REPORT INFORMATION
  Report Type: 
  Country: None (occurrence: None)
  Receive Date: 20110301
  Receipt Date: 20110223
  Transmission Date: 20110831
  Serious: Yes (Life-Threatening, Other)
  Sender: FDA-Public Use
  Company Number: GB-GENZYME-CLOF-1001124

PATIENT
  Sex: Male

DRUGS (8)
  1. DAUNORUBICIN [Suspect]
     Indication: ACUTE MYELOID LEUKAEMIA
     Dosage: 88 MG, UNK
     Route: 042
     Dates: start: 20100608, end: 20100612
  2. ENALAPRIL [Concomitant]
     Indication: HYPERTENSION
  3. ARA-C [Suspect]
     Indication: ACUTE MYELOID LEUKAEMIA
     Dosage: 182 MG, UNK
     Route: 042
     Dates: start: 20100421, end: 20100430
  4. EVOLTRA [Suspect]
     Indication: ACUTE MYELOID LEUKAEMIA
     Dosage: 35 MG, UNK
     Route: 042
     Dates: start: 20100608, end: 20100612
  5. ITRACONAZOLE [Concomitant]
     Indication: PRODUCT USED FOR UNKNOWN INDICATION
     Dosage: 300 MG, UNK
     Dates: start: 20100430
  6. DAUNORUBICIN [Suspect]
     Dosage: 91 MG, UNK
     Route: 042
     Dates: start: 20100420, end: 20100424
  7. ACYCLOVIR [Concomitant]
     Indication: PRODUCT USED FOR UNKNOWN INDICATION
     Dosage: 400 MG, UNK
     Dates: start: 20100414
  8. ATENOLOL [Concomitant]
     Indication: HYPERTENSION

REACTIONS (2)
  - THROMBOCYTOPENIA [None]
  - NEUTROPENIA [None]
